FAERS Safety Report 5696961-3 (Version None)
Quarter: 2008Q2

REPORT INFORMATION
  Report Type: 
  Country: None (occurrence: None)
  Receive Date: 20080408
  Receipt Date: 20070205
  Transmission Date: 20081010
  Serious: No
  Sender: FDA-Public Use
  Company Number: US-BAYER-US-2007-004256

PATIENT
  Age: 43 Year
  Sex: Female
  Weight: 59 kg

DRUGS (1)
  1. YASMIN [Suspect]
     Indication: ORAL CONTRACEPTION
     Route: 048
     Dates: start: 20060701, end: 20061201

REACTIONS (6)
  - ABDOMINAL DISTENSION [None]
  - AMENORRHOEA [None]
  - BLOOD CHOLESTEROL INCREASED [None]
  - MIGRAINE [None]
  - PAIN [None]
  - WEIGHT INCREASED [None]
